FAERS Safety Report 19979067 (Version 4)
Quarter: 2022Q2

REPORT INFORMATION
  Report Type: Report from Study
  Country: NL (occurrence: NL)
  Receive Date: 20211020
  Receipt Date: 20220425
  Transmission Date: 20220721
  Serious: Yes (Death, Other)
  Sender: FDA-Public Use
  Company Number: NL-PFIZER INC-202101379662

PATIENT

DRUGS (3)
  1. PACLITAXEL [Suspect]
     Active Substance: PACLITAXEL
     Indication: Neoplasm malignant
     Dosage: 90 MG/M2, CYCLIC (WEEKLY; THE POSSIBILITY TO REDUCE THE DOSE TO 75 MG/M2 AND 60 MG/M2 IN CASE OF TOX
     Route: 042
  2. BAY-1217389 [Suspect]
     Active Substance: BAY-1217389
     Indication: Neoplasm malignant
     Dosage: 0.25 MG TWICE DAILY, 2-DAYS-ON/5-DAYS-OFF DOSING SCHEDULE IN A 28-DAY CYCLE
     Route: 048
  3. BAY-1217389 [Suspect]
     Active Substance: BAY-1217389
     Dosage: DOSE ESCALATION UP TO 240 MG TWICE DAILY, 2-DAYS-ON/5-DAYS-OFF DOSING SCHEDULE IN A 28-DAY CYCLE
     Route: 048

REACTIONS (4)
  - Febrile neutropenia [Fatal]
  - Colitis [Unknown]
  - Platelet count decreased [Unknown]
  - Diarrhoea [Unknown]
